FAERS Safety Report 13725864 (Version 1)
Quarter: 2017Q3

REPORT INFORMATION
  Report Type: Spontaneous
  Country: US (occurrence: US)
  Receive Date: 20170706
  Receipt Date: 20170706
  Transmission Date: 20171127
  Serious: Yes (Disabling, Other)
  Sender: FDA-Public Use
  Company Number: None

PATIENT
  Age: 70 Year
  Sex: Female

DRUGS (1)
  1. BUTRANS [Suspect]
     Active Substance: BUPRENORPHINE
     Indication: PAIN
     Dosage: .02 MG ONE PATCH WEEKLY TRANSDERMAL?
     Route: 062
     Dates: start: 20170618, end: 20170706

REACTIONS (3)
  - Application site scar [None]
  - Application site vesicles [None]
  - Burns second degree [None]

NARRATIVE: CASE EVENT DATE: 20170706
